FAERS Safety Report 4351599-5 (Version None)
Quarter: 2004Q2

REPORT INFORMATION
  Report Type: 
  Country: None (occurrence: None)
  Receive Date: 20040429
  Receipt Date: 20040329
  Transmission Date: 20050107
  Serious: No
  Sender: FDA-Public Use
  Company Number: 2004-115110-NL

PATIENT
  Sex: Female

DRUGS (7)
  1. NUVARING [Suspect]
     Dosage: DF DAILY
     Dates: start: 20040127
  2. ZOLOFT [Concomitant]
  3. MOTRIN [Concomitant]
  4. PREVACID [Concomitant]
  5. FEMENN [Concomitant]
  6. CALCIUM [Concomitant]
  7. CENTRUM [Concomitant]

REACTIONS (2)
  - DEVICE FAILURE [None]
  - MEDICAL DEVICE DISCOMFORT [None]
